FAERS Safety Report 22320624 (Version 4)
Quarter: 2023Q4

REPORT INFORMATION
  Report Type: Spontaneous
  Country: CA (occurrence: CA)
  Receive Date: 20230515
  Receipt Date: 20231120
  Transmission Date: 20240110
  Serious: Yes (Other)
  Sender: FDA-Public Use
  Company Number: CA-PFIZER INC-202201340570

PATIENT
  Age: 40 Year
  Sex: Male
  Weight: 89 kg

DRUGS (4)
  1. RUXIENCE [Suspect]
     Active Substance: RITUXIMAB-PVVR
     Indication: Immune thrombocytopenia
     Dosage: 1000 MG, AT DAY 1 AND DAY 15 (RECEIVED DAY 1)
     Route: 042
     Dates: start: 20230509
  2. RUXIENCE [Suspect]
     Active Substance: RITUXIMAB-PVVR
     Indication: Interstitial lung disease
     Dosage: 1000 MG, AT DAY 1 AND DAY 15
     Route: 042
     Dates: start: 20230509, end: 20230523
  3. RUXIENCE [Suspect]
     Active Substance: RITUXIMAB-PVVR
     Dosage: 1000 MG, DAY 1 AND DAY 15 (ON DAY 15)
     Route: 042
     Dates: start: 20230523
  4. RUXIENCE [Suspect]
     Active Substance: RITUXIMAB-PVVR
     Dosage: 1 G, DAY 1 AND 15 (1000 MG, 24 WEEKS)
     Route: 042
     Dates: start: 20231109

REACTIONS (8)
  - Pharyngeal paraesthesia [Recovered/Resolved]
  - Nasal congestion [Recovered/Resolved]
  - Rhinorrhoea [Recovered/Resolved]
  - Blood pressure systolic increased [Recovered/Resolved]
  - Throat irritation [Recovered/Resolved]
  - Pharyngeal paraesthesia [Recovered/Resolved]
  - Pruritus [Recovered/Resolved]
  - Off label use [Unknown]

NARRATIVE: CASE EVENT DATE: 20230509
